FAERS Safety Report 18077371 (Version 2)
Quarter: 2020Q3

REPORT INFORMATION
  Report Type: Spontaneous
  Country: FR (occurrence: FR)
  Receive Date: 20200727
  Receipt Date: 20200729
  Transmission Date: 20201103
  Serious: Yes (Other)
  Sender: FDA-Public Use
  Company Number: FR-US-PROVELL PHARMACEUTICALS LLC-E2B_90078922

PATIENT
  Age: 50 Year
  Sex: Female

DRUGS (2)
  1. LEVOTHYROX [Suspect]
     Active Substance: LEVOTHYROXINE
     Indication: THYROID DISORDER
     Dosage: ONE TABLET OF 100 MCG PER DAY IN ALTERNATIVE WITH 0.5 TABLET OF 175 MCG PER DAY
     Dates: end: 202006
  2. LEVOTHYROX [Suspect]
     Active Substance: LEVOTHYROXINE
     Dosage: DOSE INCREASED?THERAPY START DATE: JUN 2020

REACTIONS (6)
  - Headache [Recovered/Resolved]
  - Vertigo [Unknown]
  - Insomnia [Recovered/Resolved]
  - Hot flush [Recovered/Resolved]
  - Dizziness [Recovered/Resolved]
  - Breast cancer [Unknown]

NARRATIVE: CASE EVENT DATE: 2018
